FAERS Safety Report 10552882 (Version 3)
Quarter: 2014Q4

REPORT INFORMATION
  Report Type: Spontaneous
  Country: US (occurrence: US)
  Receive Date: 20141029
  Receipt Date: 20141120
  Transmission Date: 20150529
  Serious: Yes (Other)
  Sender: FDA-Public Use
  Company Number: US-009507513-1410USA015350

PATIENT
  Sex: Male
  Weight: 70.3 kg

DRUGS (1)
  1. COPPERTONE WATER BABIES SUNSCREEN SPF 70 PLUS [Suspect]
     Active Substance: AVOBENZONE\HOMOSALATE\OCTISALATE\OCTOCRYLENE\OXYBENZONE
     Indication: PROPHYLAXIS AGAINST SOLAR RADIATION
     Dosage: UNK, UNKNOWN
     Route: 061
     Dates: start: 2000

REACTIONS (1)
  - Malignant melanoma [Unknown]
